FAERS Safety Report 5108190-2 (Version None)
Quarter: 2006Q3

REPORT INFORMATION
  Report Type: 
  Country: None (occurrence: None)
  Receive Date: 20060919
  Receipt Date: 20060908
  Transmission Date: 20061208
  Serious: Yes (Hospitalization)
  Sender: FDA-Public Use
  Company Number: CH-ROCHE-462701

PATIENT
  Age: 66 Year
  Sex: Male

DRUGS (10)
  1. TOREM [Suspect]
     Indication: DRUG USE FOR UNKNOWN INDICATION
     Dosage: DURATION OF USE: LONG TERM
     Route: 048
     Dates: end: 20060629
  2. LYRICA [Suspect]
     Indication: DRUG USE FOR UNKNOWN INDICATION
     Route: 048
     Dates: start: 20060623, end: 20060629
  3. LIPANTHYL [Suspect]
     Dosage: DURATION OF USE: ^ LONG TERM^
     Route: 048
     Dates: end: 20060629
  4. CO-DIOVAN [Suspect]
     Indication: DRUG USE FOR UNKNOWN INDICATION
     Dosage: - DURATION OF USE: LONG TERM - COATED TABLETS, FILM -STRENGTH REPORTED AS 12.5MG/160MG
     Route: 048
     Dates: end: 20060629
  5. NOVORAPID [Concomitant]
     Dosage: REPORTED AS ^NOVORAPID PENFILL^
     Route: 058
  6. SELIPRAN [Concomitant]
     Route: 048
  7. PANTOZOL [Concomitant]
     Route: 048
  8. PLAVIX [Concomitant]
     Dosage: FORM: COATED TABLETS
     Route: 048
  9. DIOVAN [Concomitant]
     Dosage: REPORTED AS ^160/DAY^
  10. BISOPROLOL FUMARATE [Concomitant]

REACTIONS (4)
  - BLOOD CREATININE INCREASED [None]
  - DIARRHOEA [None]
  - PANCREATITIS [None]
  - PANCREATITIS ACUTE [None]
